FAERS Safety Report 19261007 (Version 2)
Quarter: 2021Q2

REPORT INFORMATION
  Report Type: Report from Study
  Country: ZA (occurrence: ZA)
  Receive Date: 20210515
  Receipt Date: 20210617
  Transmission Date: 20210717
  Serious: Yes (Hospitalization, Other)
  Sender: FDA-Public Use
  Company Number: NVSC2021ZA105172

PATIENT
  Age: 36 Year
  Sex: Female

DRUGS (1)
  1. TUVIGIN [Suspect]
     Active Substance: FINGOLIMOD HYDROCHLORIDE
     Indication: RELAPSING-REMITTING MULTIPLE SCLEROSIS
     Dosage: 0.5 MG, QD
     Route: 048
     Dates: start: 20190806

REACTIONS (7)
  - Intestinal obstruction [Unknown]
  - Pelvic prolapse [Unknown]
  - Dysuria [Unknown]
  - Urge incontinence [Unknown]
  - Rectal discharge [Unknown]
  - Electrocardiogram abnormal [Unknown]
  - Rectal prolapse [Unknown]

NARRATIVE: CASE EVENT DATE: 20210517
